FAERS Safety Report 7121087-1 (Version None)
Quarter: 2010Q4

REPORT INFORMATION
  Report Type: 
  Country: None (occurrence: None)
  Receive Date: 20101124
  Receipt Date: 20101122
  Transmission Date: 20110411
  Serious: Yes (Hospitalization, Other)
  Sender: FDA-Public Use
  Company Number: US-BRISTOL-MYERS SQUIBB COMPANY-15352438

PATIENT
  Age: 5 Year
  Sex: Male

DRUGS (3)
  1. ABILIFY [Suspect]
     Indication: AGGRESSION
  2. ABILIFY [Suspect]
     Indication: ANXIETY
  3. ABILIFY [Suspect]
     Indication: ATTENTION DEFICIT/HYPERACTIVITY DISORDER

REACTIONS (8)
  - DROOLING [None]
  - DRUG DISPENSING ERROR [None]
  - DYSARTHRIA [None]
  - ENURESIS [None]
  - FEEDING DISORDER [None]
  - MOTOR DYSFUNCTION [None]
  - SOMNOLENCE [None]
  - TREMOR [None]
